FAERS Safety Report 21495561 (Version 5)
Quarter: 2023Q1

REPORT INFORMATION
  Report Type: Report from Study
  Country: CA (occurrence: CA)
  Receive Date: 20221022
  Receipt Date: 20230313
  Transmission Date: 20230417
  Serious: Yes (Other)
  Sender: FDA-Public Use
  Company Number: CA-NOVARTISPH-NVSC2022CA219579

PATIENT
  Age: 57 Year
  Sex: Female

DRUGS (6)
  1. HYRIMOZ [Suspect]
     Active Substance: ADALIMUMAB-ADAZ
     Indication: Colitis ulcerative
     Dosage: 40 MG
     Route: 058
     Dates: start: 20220924
  2. HYRIMOZ [Suspect]
     Active Substance: ADALIMUMAB-ADAZ
     Dosage: 40 MG
     Route: 058
     Dates: start: 20220925
  3. HYRIMOZ [Suspect]
     Active Substance: ADALIMUMAB-ADAZ
     Dosage: 40 MG, BID
     Route: 058
  4. PENTASA [Suspect]
     Active Substance: MESALAMINE
     Indication: Haematochezia
     Dosage: UNK, QD (NIGHTLY)
     Route: 065
     Dates: end: 20221008
  5. PENTASA [Suspect]
     Active Substance: MESALAMINE
     Indication: Intestinal haemorrhage
     Dosage: UNK
     Route: 065
     Dates: start: 20221015
  6. IRON SUCROSE [Concomitant]
     Active Substance: IRON SUCROSE
     Indication: Product used for unknown indication
     Dosage: UNK
     Route: 065

REACTIONS (14)
  - Haematochezia [Unknown]
  - Rectal haemorrhage [Not Recovered/Not Resolved]
  - Colitis ulcerative [Unknown]
  - Intestinal haemorrhage [Unknown]
  - Vision blurred [Unknown]
  - Fatigue [Unknown]
  - Malaise [Unknown]
  - Mobility decreased [Unknown]
  - Injection site bruising [Unknown]
  - Injection site reaction [Unknown]
  - Injection site pain [Unknown]
  - Injection site erythema [Unknown]
  - Incorrect dose administered [Unknown]
  - Drug ineffective [Unknown]

NARRATIVE: CASE EVENT DATE: 20220901
